FAERS Safety Report 23104636 (Version 2)
Quarter: 2023Q4

REPORT INFORMATION
  Report Type: Spontaneous
  Country: CO (occurrence: CO)
  Receive Date: 20231025
  Receipt Date: 20231031
  Transmission Date: 20240110
  Serious: Yes (Other)
  Sender: FDA-Public Use
  Company Number: CO-BAXTER-2023BAX033885

PATIENT

DRUGS (1)
  1. SODIUM CHLORIDE [Suspect]
     Active Substance: SODIUM CHLORIDE
     Dosage: (SC 0.9% X 100 ML) AT AN UNSPECIFIED DOSE AND FREQUENCY
     Route: 042
     Dates: start: 20231016, end: 20231016

REACTIONS (1)
  - Bacterial infection [Recovered/Resolved]

NARRATIVE: CASE EVENT DATE: 20231016
